FAERS Safety Report 7111260-0 (Version None)
Quarter: 2010Q4

REPORT INFORMATION
  Report Type: 
  Country: None (occurrence: None)
  Receive Date: 20101118
  Receipt Date: 20091231
  Transmission Date: 20110411
  Serious: Yes (Other)
  Sender: FDA-Public Use
  Company Number: US-PFIZER INC-2009316261

PATIENT
  Sex: Female

DRUGS (48)
  1. LINEZOLID [Suspect]
     Dosage: 600 MG, 2X/DAY
     Dates: start: 20091002, end: 20091014
  2. ARANESP [Suspect]
     Indication: RENAL FAILURE CHRONIC
     Dosage: UNK
     Route: 058
     Dates: start: 20060101, end: 20091009
  3. METHYLPREDNISOLONE [Concomitant]
  4. VANCOMYCIN [Concomitant]
  5. PROMETHAZINE [Concomitant]
  6. PROMETHAZINE HYDROCHLORIDE [Concomitant]
     Dosage: 12.5 MG, AS NEEDED
  7. LOMOTIL [Concomitant]
  8. VITAMINS [Concomitant]
  9. FOLIC ACID [Concomitant]
     Dosage: 1 MG, 1X/DAY
  10. VENOFER [Concomitant]
  11. FUROSEMIDE [Concomitant]
     Dosage: 40 MG, 2X/DAY
  12. MICONAZOLE NITRATE [Concomitant]
     Dosage: UNK, 2X/ DAY
  13. ONDANSETRON HYDROCHLORIDE [Concomitant]
  14. CYANOCOBALAMIN [Concomitant]
     Dosage: 1 MG, MONTHLY
     Route: 030
  15. ACETAMINOPHEN AND OXYCODONE HCL [Concomitant]
     Dosage: UNK, AS NECESSARY
  16. SIMVASTATIN [Concomitant]
     Dosage: 60 MG, 1X/DAY
  17. METRONIDAZOLE [Concomitant]
     Dosage: 500 MG, 3X/DAY
  18. METOPROLOL [Concomitant]
     Dosage: 50 MG, 2X/DAY
  19. LOSARTAN POTASSIUM [Concomitant]
     Dosage: 50 MG, 2X/DAY
     Route: 048
  20. ISOSORBIDE MONONITRATE [Concomitant]
     Dosage: 60 MG, 1X/DAY
  21. FORMOTEROL [Concomitant]
     Dosage: UNK, 2X/DAY
  22. EZETIMIBE [Concomitant]
     Dosage: 10 MG, 1X/DAY
  23. PANTOPRAZOLE SODIUM [Concomitant]
     Dosage: 40 MG, 1X/DAY
  24. COMBIVENT [Concomitant]
     Dosage: UNK, 3X/DAY
  25. HEPARIN [Concomitant]
  26. INSULIN ASPART [Concomitant]
  27. LORAZEPAM [Concomitant]
     Dosage: 2 MG, UNK
     Route: 042
     Dates: start: 20091008, end: 20091013
  28. LIDOCAINE [Concomitant]
     Dosage: UNK
     Dates: start: 20090829, end: 20091001
  29. INSULIN HUMAN [Concomitant]
  30. INSULIN [Concomitant]
  31. AMLODIPINE BESILATE [Concomitant]
     Dosage: 10 MG, 1X/DAY
  32. OS-CAL D [Concomitant]
     Dosage: UNK, 2X/DAY
  33. BIMATOPROST [Concomitant]
     Dosage: UNK, 1X/DAY
     Route: 047
  34. METOCLOPRAMIDE [Concomitant]
     Dosage: 5 MG, 4X/DAY
     Route: 042
  35. SODIUM BICARBONATE [Concomitant]
     Dosage: 1300 MG, 3X/DAY
  36. CLOPIDOGREL BISULFATE [Concomitant]
     Dosage: 75 MG, 1X/DAY
     Dates: end: 20091001
  37. DIPYRIDAMOLE [Concomitant]
     Dosage: UNK, 2X/DAY
     Dates: start: 20091001
  38. MAGNESIUM OXIDE [Concomitant]
     Dosage: 400 MG, 1X/DAY
  39. NYSTATIN [Concomitant]
     Dosage: UNK, 3X/DAY
  40. ALLBEE WITH C [Concomitant]
     Dosage: UNK, 1X/DAY
  41. QUETIAPINE [Concomitant]
     Dosage: 25 MG, 1X/DAY
  42. PREDNISONE [Concomitant]
     Dosage: 10 MG, 2X/DAY
  43. DOCUSATE SODIUM [Concomitant]
     Dosage: 100 MG, 1X/DAY
  44. NOVOLIN 70/30 [Concomitant]
     Dosage: 5 IU, 3X/DAY
  45. IRON SULFATETHIAMIN COMPOUND TAB [Concomitant]
     Dosage: 325 MG, 2X/DAY
  46. ACETAMINOPHEN [Concomitant]
     Dosage: UNK, AS NECESSARY
  47. MAALOX [Concomitant]
     Dosage: 30 ML, AS NEEDED
  48. MAGNESIUM CITRATE [Concomitant]
     Dosage: UNK, AS NECESSARY

REACTIONS (1)
  - APLASIA PURE RED CELL [None]
